FAERS Safety Report 8241123-9 (Version None)
Quarter: 2012Q1

REPORT INFORMATION
  Report Type: 
  Country: None (occurrence: None)
  Receive Date: 20120328
  Receipt Date: 20120319
  Transmission Date: 20120608
  Serious: Yes (Death, Other)
  Sender: FDA-Public Use
  Company Number: US-PURDUE-USA-2012-0084348

PATIENT
  Age: 45 Year
  Sex: Male
  Weight: 83.9 kg

DRUGS (3)
  1. METHADONE HCL [Suspect]
     Indication: PRODUCT USED FOR UNKNOWN INDICATION
  2. COCAINE [Suspect]
     Indication: DRUG ABUSE
  3. MORPHINE SULFATE [Suspect]
     Indication: PRODUCT USED FOR UNKNOWN INDICATION

REACTIONS (5)
  - SUBSTANCE ABUSE [None]
  - SKULL FRACTURE [None]
  - GUN SHOT WOUND [None]
  - VICTIM OF HOMICIDE [None]
  - HAEMORRHAGE INTRACRANIAL [None]
